FAERS Safety Report 19761594 (Version 1)
Quarter: 2021Q3

REPORT INFORMATION
  Report Type: Spontaneous
  Country: DE (occurrence: DE)
  Receive Date: 20210827
  Receipt Date: 20210827
  Transmission Date: 20211014
  Serious: Yes (Death, Life-Threatening, Other)
  Sender: FDA-Public Use
  Company Number: DE-ALXN-A202109564

PATIENT
  Age: 73 Year
  Sex: Male
  Weight: 72 kg

DRUGS (1)
  1. ONDEXXYA [Suspect]
     Active Substance: ANDEXANET ALFA
     Indication: PROCOAGULANT THERAPY
     Dosage: 800 MG, UNK
     Route: 042
     Dates: start: 20210818

REACTIONS (5)
  - Post procedural stroke [Fatal]
  - Arrhythmia [Fatal]
  - Myocardial infarction [Fatal]
  - Vascular graft occlusion [Fatal]
  - Disturbance in attention [Fatal]

NARRATIVE: CASE EVENT DATE: 20210818
